FAERS Safety Report 16694805 (Version 3)
Quarter: 2019Q3

REPORT INFORMATION
  Report Type: Spontaneous
  Country: US (occurrence: US)
  Receive Date: 20190812
  Receipt Date: 20190823
  Transmission Date: 20191004
  Serious: Yes (Life-Threatening, Other)
  Sender: FDA-Public Use
  Company Number: US-BIOMARINAP-US-2019-125089

PATIENT
  Age: 1 Year
  Sex: Male

DRUGS (1)
  1. ALDURAZYME [Suspect]
     Active Substance: LARONIDASE
     Indication: MUCOPOLYSACCHARIDOSIS I
     Dosage: 0.58 MILLIGRAM, QW
     Route: 041
     Dates: start: 20190517

REACTIONS (8)
  - Fluid overload [Not Recovered/Not Resolved]
  - Anaphylactic reaction [Recovering/Resolving]
  - Hypertension [Recovering/Resolving]
  - Crying [Not Recovered/Not Resolved]
  - Tachycardia [Recovering/Resolving]
  - Angioedema [Recovering/Resolving]
  - White blood cell count decreased [Not Recovered/Not Resolved]
  - Erythema [Recovering/Resolving]

NARRATIVE: CASE EVENT DATE: 2019
